FAERS Safety Report 7115839-1 (Version None)
Quarter: 2010Q4

REPORT INFORMATION
  Report Type: 
  Country: None (occurrence: None)
  Receive Date: 20101122
  Receipt Date: 20101108
  Transmission Date: 20110411
  Serious: Yes (Hospitalization)
  Sender: FDA-Public Use
  Company Number: US-ELI_LILLY_AND_COMPANY-US201007007305

PATIENT
  Age: 51 Year
  Sex: Male

DRUGS (6)
  1. FORTEO [Suspect]
     Indication: OSTEOPOROSIS
     Dosage: UNK, UNK
     Dates: start: 20100801
  2. ENBREL [Concomitant]
  3. LYRICA [Concomitant]
  4. METHOTREXATE [Concomitant]
  5. DILAUDID [Concomitant]
  6. PERCOCET [Concomitant]
     Dosage: 1 D/F, AS NEEDED

REACTIONS (3)
  - FIBROMYALGIA [None]
  - INTERVERTEBRAL DISC DISORDER [None]
  - RHEUMATOID ARTHRITIS [None]
